FAERS Safety Report 4587154-1 (Version None)
Quarter: 2005Q1

REPORT INFORMATION
  Report Type: 
  Country: None (occurrence: None)
  Receive Date: 20050215
  Receipt Date: 20050201
  Transmission Date: 20050727
  Serious: Yes (Life-Threatening, Other)
  Sender: FDA-Public Use
  Company Number: S05-USA-00683-01

PATIENT
  Age: 33 Year
  Sex: Female

DRUGS (6)
  1. LEXAPRO [Suspect]
     Indication: DEPRESSION
     Dosage: 10 MG QD PO
     Route: 048
     Dates: start: 20041101, end: 20041201
  2. LEXAPRO [Suspect]
     Indication: INSOMNIA
     Dosage: 10 MG QD PO
     Route: 048
     Dates: start: 20041101, end: 20041201
  3. LEXAPRO [Suspect]
     Indication: DEPRESSION
     Dosage: 20 MG QD PO
     Route: 048
     Dates: start: 20041201, end: 20041201
  4. LEXAPRO [Suspect]
     Indication: INSOMNIA
     Dosage: 20 MG QD PO
     Route: 048
     Dates: start: 20041201, end: 20041201
  5. KLONOPIN [Concomitant]
  6. TRAZODONE HCL [Concomitant]

REACTIONS (4)
  - ATTENTION-SEEKING BEHAVIOUR [None]
  - BURNS SECOND DEGREE [None]
  - BURNS THIRD DEGREE [None]
  - SUICIDE ATTEMPT [None]
